FAERS Safety Report 16998398 (Version 2)
Quarter: 2020Q3

REPORT INFORMATION
  Report Type: Spontaneous
  Country: NI (occurrence: NI)
  Receive Date: 20191106
  Receipt Date: 20191107
  Transmission Date: 20201105
  Serious: Yes (Death, Congenital Anomaly, Other)
  Sender: FDA-Public Use
  Company Number: NI-GLAXOSMITHKLINE-NI2019AMR196939

PATIENT
  Sex: Female
  Weight: 2 kg

DRUGS (4)
  1. DICLOFENAC [Suspect]
     Active Substance: DICLOFENAC
     Indication: PRODUCT USED FOR UNKNOWN INDICATION
     Dosage: UNK
     Route: 064
  2. VITAMIN B COMPLEX [Suspect]
     Active Substance: CYANOCOBALAMIN\DEXPANTHENOL\NIACINAMIDE\PYRIDOXINE HYDROCHLORIDE\RIBOFLAVIN 5^-PHOSPHATE SODIUM\THIAMINE HYDROCHLORIDE\VITAMIN B COMPLEX
  3. FERROUS SULFATE. [Suspect]
     Active Substance: FERROUS SULFATE
     Indication: IRON DEFICIENCY ANAEMIA
     Dosage: UNK
     Route: 064
  4. FOLIC ACID. [Suspect]
     Active Substance: FOLIC ACID
     Indication: IRON DEFICIENCY ANAEMIA
     Dosage: UNK
     Route: 064

REACTIONS (12)
  - Craniofacial deformity [Unknown]
  - Abnormal organ growth [Unknown]
  - Congenital hydronephrosis [Unknown]
  - Muscle tone disorder [Unknown]
  - Congenital gastric anomaly [Unknown]
  - Multiple congenital abnormalities [Fatal]
  - Renal disorder [Fatal]
  - Foetal exposure during pregnancy [Unknown]
  - Encephalocele [Fatal]
  - Premature baby [Unknown]
  - Cyanosis [Unknown]
  - Congenital urethral anomaly [Unknown]
